FAERS Safety Report 18688665 (Version 1)
Quarter: 2020Q4

REPORT INFORMATION
  Report Type: Spontaneous
  Country: US (occurrence: US)
  Receive Date: 20201231
  Receipt Date: 20201231
  Transmission Date: 20210114
  Serious: Yes (Death)
  Sender: FDA-Public Use
  Company Number: US-ROCHE-2741460

PATIENT
  Age: 72 Year
  Sex: Female

DRUGS (20)
  1. CLONIDINE. [Concomitant]
     Active Substance: CLONIDINE
  2. ESTRADIOL. [Concomitant]
     Active Substance: ESTRADIOL
  3. FLUCONAZOLE. [Concomitant]
     Active Substance: FLUCONAZOLE
  4. IRBESARTAN. [Concomitant]
     Active Substance: IRBESARTAN
  5. TRAZODONE [Concomitant]
     Active Substance: TRAZODONE HYDROCHLORIDE
  6. CLINDAMYCIN. [Concomitant]
     Active Substance: CLINDAMYCIN
  7. CLOPIDOGREL [Concomitant]
     Active Substance: CLOPIDOGREL BISULFATE
  8. FLUOXETINE [Concomitant]
     Active Substance: FLUOXETINE HYDROCHLORIDE
  9. MUPIROCIN. [Concomitant]
     Active Substance: MUPIROCIN
  10. OXYCODONE [Concomitant]
     Active Substance: OXYCODONE
  11. PRAVASTATIN. [Concomitant]
     Active Substance: PRAVASTATIN
  12. LEVOTHYROXINE. [Concomitant]
     Active Substance: LEVOTHYROXINE
  13. METOPROLOL TARTRATE. [Concomitant]
     Active Substance: METOPROLOL TARTRATE
  14. ROPINIROLE. [Concomitant]
     Active Substance: ROPINIROLE
  15. ESBRIET [Suspect]
     Active Substance: PIRFENIDONE
     Indication: IDIOPATHIC PULMONARY FIBROSIS
     Dosage: 3 TABS TID
     Route: 048
     Dates: start: 20190504, end: 20201222
  16. VALSARTAN HCTZ [Concomitant]
     Active Substance: HYDROCHLOROTHIAZIDE\VALSARTAN
  17. CEPHALEXIN. [Concomitant]
     Active Substance: CEPHALEXIN
  18. GABAPENTIN. [Concomitant]
     Active Substance: GABAPENTIN
  19. ATORVASTATIN [Concomitant]
     Active Substance: ATORVASTATIN
  20. PROPAFENONE. [Concomitant]
     Active Substance: PROPAFENONE

REACTIONS (2)
  - Muscle spasms [Fatal]
  - Haemorrhage [Fatal]

NARRATIVE: CASE EVENT DATE: 20201222
